FAERS Safety Report 17203533 (Version 1)
Quarter: 2019Q4

REPORT INFORMATION
  Report Type: Spontaneous
  Country: US (occurrence: US)
  Receive Date: 20191226
  Receipt Date: 20191226
  Transmission Date: 20200122
  Serious: No
  Sender: FDA-Public Use
  Company Number: US-CATALYST PHARMACEUTICALS, INC-2019CAT00629

PATIENT
  Age: 50 Year
  Sex: Male
  Weight: 102.04 kg

DRUGS (4)
  1. NEOSTIGMINE. [Concomitant]
     Active Substance: NEOSTIGMINE METHYLSULFATE
  2. KEPPRA [Concomitant]
     Active Substance: LEVETIRACETAM
  3. PREDNISONE. [Concomitant]
     Active Substance: PREDNISONE
  4. FIRDAPSE [Suspect]
     Active Substance: AMIFAMPRIDINE
     Indication: MYASTHENIC SYNDROME
     Dosage: 10 MG, 4X/DAY
     Route: 048

REACTIONS (2)
  - Product dose omission [Recovered/Resolved]
  - Influenza [Recovered/Resolved]

NARRATIVE: CASE EVENT DATE: 201910
